FAERS Safety Report 7002493-2 (Version None)
Quarter: 2010Q3

REPORT INFORMATION
  Report Type: 
  Country: None (occurrence: None)
  Receive Date: 20100920
  Receipt Date: 20091105
  Transmission Date: 20110219
  Serious: No
  Sender: FDA-Public Use
  Company Number: US-ASTRAZENECA-2008UW27548

PATIENT
  Age: 36 Year
  Sex: Female
  Weight: 90.7 kg

DRUGS (9)
  1. SEROQUEL [Suspect]
     Indication: BIPOLAR DISORDER
     Route: 048
     Dates: start: 20050601, end: 20050701
  2. SEROQUEL [Suspect]
     Indication: DEPRESSION
     Route: 048
     Dates: start: 20050601, end: 20050701
  3. CELEXA [Concomitant]
  4. TRILHAL [Concomitant]
  5. TRIZADON [Concomitant]
  6. LYRICA [Concomitant]
  7. ZOLOFT [Concomitant]
  8. CYMBALTA [Concomitant]
  9. LITHIUM [Concomitant]

REACTIONS (3)
  - INTERVERTEBRAL DISC PROTRUSION [None]
  - MIGRAINE [None]
  - TYPE 2 DIABETES MELLITUS [None]
